FAERS Safety Report 24680061 (Version 1)
Quarter: 2024Q4

REPORT INFORMATION
  Report Type: Spontaneous
  Country: CN (occurrence: CN)
  Receive Date: 20241129
  Receipt Date: 20241129
  Transmission Date: 20250115
  Serious: Yes (Other)
  Sender: AMGEN
  Company Number: CN-AMGEN-CHNSP2024232803

PATIENT

DRUGS (2)
  1. REPATHA [Suspect]
     Active Substance: EVOLOCUMAB
     Indication: Coronary artery disease
     Dosage: 140 MILLIGRAM, Q2WK
     Route: 065
  2. ROSUVASTATIN CALCIUM [Concomitant]
     Active Substance: ROSUVASTATIN CALCIUM
     Dosage: 10 MILLIGRAM, QD
     Route: 065

REACTIONS (7)
  - Angina pectoris [Unknown]
  - Myocardial infarction [Unknown]
  - Arrhythmia [Unknown]
  - Cardiac failure [Unknown]
  - Gastrointestinal disorder [Unknown]
  - Transaminases increased [Unknown]
  - Myalgia [Unknown]
